FAERS Safety Report 20895256 (Version 1)
Quarter: 2022Q2

REPORT INFORMATION
  Report Type: Spontaneous
  Country: US (occurrence: None)
  Receive Date: 20220528
  Receipt Date: 20220528
  Transmission Date: 20220721
  Serious: Yes (Other)
  Sender: FDA-Public Use
  Company Number: None

PATIENT
  Sex: Female

DRUGS (1)
  1. GENTLE STEPS VITAMINS A AND D DIAPER RASH AND SKIN PROTECTANT [Suspect]
     Active Substance: LANOLIN\PETROLATUM
     Indication: Dry skin prophylaxis
     Dates: start: 20220525, end: 20220526

REACTIONS (3)
  - Expired product administered [None]
  - Rash pruritic [None]
  - Skin disorder [None]

NARRATIVE: CASE EVENT DATE: 20220526
